FAERS Safety Report 21694120 (Version 1)
Quarter: 2022Q4

REPORT INFORMATION
  Report Type: Spontaneous
  Country: PL (occurrence: None)
  Receive Date: 20221207
  Receipt Date: 20221207
  Transmission Date: 20230112
  Serious: Yes (Hospitalization, Other)
  Sender: FDA-Public Use
  Company Number: 2022A392281

PATIENT
  Age: 28 Year
  Sex: Female

DRUGS (6)
  1. QUETIAPINE [Suspect]
     Active Substance: QUETIAPINE
     Indication: Acute psychosis
     Dosage: 100 MILLIGRAM, UNK100.0MG UNKNOWN
     Route: 048
  2. ARIPIPRAZOLE [Suspect]
     Active Substance: ARIPIPRAZOLE
     Indication: Acute psychosis
     Dosage: 15 MILLIGRAM, UNK15.0MG UNKNOWN
     Route: 065
  3. ALPRAZOLAM [Suspect]
     Active Substance: ALPRAZOLAM
     Indication: Acute psychosis
     Dosage: 0.25 MILLIGRAM, UNK0.25MG UNKNOWN
     Route: 065
  4. CITALOPRAM [Suspect]
     Active Substance: CITALOPRAM HYDROBROMIDE
     Indication: Acute psychosis
     Dosage: 10 MILLIGRAM, UNK10.0MG UNKNOWN
     Route: 065
  5. OLANZAPINE [Suspect]
     Active Substance: OLANZAPINE
     Indication: Acute psychosis
     Dosage: 5 MILLIGRAM, UNK5.0MG UNKNOWN
     Route: 065
  6. OLANZAPINE [Suspect]
     Active Substance: OLANZAPINE
     Indication: Acute psychosis
     Dosage: DOSE UNKNOEN UNKNOWN
     Route: 065

REACTIONS (6)
  - Headache [Unknown]
  - Memory impairment [Unknown]
  - Hyperprolactinaemia [Unknown]
  - Disturbance in attention [Unknown]
  - Disease progression [Unknown]
  - Hypoaesthesia [Unknown]
